FAERS Safety Report 25192837 (Version 1)
Quarter: 2025Q2

REPORT INFORMATION
  Report Type: Spontaneous
  Country: US (occurrence: US)
  Receive Date: 20250414
  Receipt Date: 20250414
  Transmission Date: 20250717
  Serious: No
  Sender: ELI LILLY AND CO
  Company Number: US-ELI_LILLY_AND_COMPANY-US202504011890

PATIENT
  Age: 35 Year
  Sex: Female

DRUGS (1)
  1. INSULIN LISPRO [Suspect]
     Active Substance: INSULIN LISPRO
     Indication: Gestational diabetes
     Route: 065

REACTIONS (3)
  - Blood glucose increased [Unknown]
  - Maternal exposure during pregnancy [Unknown]
  - Accidental underdose [Unknown]

NARRATIVE: CASE EVENT DATE: 20250410
